FAERS Safety Report 11852958 (Version 16)
Quarter: 2023Q1

REPORT INFORMATION
  Report Type: Spontaneous
  Country: ES (occurrence: ES)
  Receive Date: 20151218
  Receipt Date: 20230331
  Transmission Date: 20230418
  Serious: Yes (Hospitalization, Other)
  Sender: FDA-Public Use
  Company Number: None

PATIENT
  Age: 74 Year
  Sex: Female

DRUGS (23)
  1. METHOTREXATE [Interacting]
     Active Substance: METHOTREXATE
     Indication: Product used for unknown indication
     Dosage: 2.5 MG,QW
     Route: 065
  2. METHOTREXATE [Interacting]
     Active Substance: METHOTREXATE
     Dosage: 5 MG,QW
     Route: 065
  3. RAMIPRIL [Interacting]
     Active Substance: RAMIPRIL
     Indication: Product used for unknown indication
     Dosage: 5 MG,QD
     Route: 065
  4. OMEPRAZOLE [Interacting]
     Active Substance: OMEPRAZOLE
     Indication: Product used for unknown indication
     Dosage: 20 MG,QD
     Route: 065
  5. HYDROCHLOROTHIAZIDE [Interacting]
     Active Substance: HYDROCHLOROTHIAZIDE
     Indication: Chronic kidney disease
     Dosage: 25 MG,QD
     Route: 065
  6. HYDROCHLOROTHIAZIDE [Interacting]
     Active Substance: HYDROCHLOROTHIAZIDE
  7. HYDROCORTISONE [Interacting]
     Active Substance: HYDROCORTISONE
     Indication: Erythrodermic psoriasis
     Dosage: UNK
     Route: 061
  8. BISOPROLOL FUMARATE [Interacting]
     Active Substance: BISOPROLOL FUMARATE
     Indication: Product used for unknown indication
     Dosage: 5 MG,QD
     Route: 065
  9. BISOPROLOL FUMARATE [Interacting]
     Active Substance: BISOPROLOL FUMARATE
     Dosage: 2.5 MG,QD
     Route: 065
  10. CLOBETASOL [Interacting]
     Active Substance: CLOBETASOL
     Indication: Product used for unknown indication
     Dosage: UNK UNK,UNK
     Route: 061
  11. CLORAZEPATE DIPOTASSIUM [Interacting]
     Active Substance: CLORAZEPATE DIPOTASSIUM
     Indication: Product used for unknown indication
     Dosage: 5 MG,QD
     Route: 065
  12. DILTIAZEM HYDROCHLORIDE [Interacting]
     Active Substance: DILTIAZEM HYDROCHLORIDE
     Indication: Product used for unknown indication
     Dosage: 120 MG,QD
     Route: 065
  13. ENOXAPARIN SODIUM [Interacting]
     Active Substance: ENOXAPARIN SODIUM
     Indication: Product used for unknown indication
     Dosage: 40 MG,QD
     Route: 065
  14. FUROSEMIDE [Interacting]
     Active Substance: FUROSEMIDE
     Indication: Chronic kidney disease
     Dosage: 60 MG,QD
     Route: 065
  15. PREDNISONE [Interacting]
     Active Substance: PREDNISONE
     Indication: Erythrodermic psoriasis
     Dosage: 0.5 MG/KG, QD
     Route: 048
  16. ALPRAZOLAM [Interacting]
     Active Substance: ALPRAZOLAM
     Indication: Euphoric mood
     Dosage: UNK UNK,UNK
     Route: 048
  17. ALPRAZOLAM [Interacting]
     Active Substance: ALPRAZOLAM
     Indication: Disorientation
  18. DIGOXIN [Interacting]
     Active Substance: DIGOXIN
     Indication: Cardiac failure congestive
     Dosage: .125 MG,QD
     Route: 065
  19. DIGOXIN [Interacting]
     Active Substance: DIGOXIN
     Indication: Atrial fibrillation
     Dosage: 0.13 MG, QD
     Route: 065
  20. METHYLPREDNISOLONE ACEPONATE [Interacting]
     Active Substance: METHYLPREDNISOLONE ACEPONATE
     Indication: Erythrodermic psoriasis
     Dosage: UNK UNK,UNK
     Route: 061
  21. ACENOCOUMAROL [Interacting]
     Active Substance: ACENOCOUMAROL
     Indication: Product used for unknown indication
     Dosage: 1 MG,QD
     Route: 065
  22. FOLIC ACID [Concomitant]
     Active Substance: FOLIC ACID
     Indication: Prophylaxis
     Dosage: 5 MG,QW
  23. INSULIN NOS [Concomitant]
     Active Substance: INSULIN NOS
     Dosage: 100 IU, QD

REACTIONS (9)
  - Erythrodermic psoriasis [Recovered/Resolved]
  - Drug interaction [Recovered/Resolved]
  - Erythema [Recovered/Resolved]
  - Condition aggravated [Recovered/Resolved]
  - Euphoric mood [Unknown]
  - Disorientation [Unknown]
  - Transaminases increased [Recovering/Resolving]
  - Somnolence [Unknown]
  - Stupor [Unknown]
